FAERS Safety Report 9051331 (Version 2)
Quarter: 2013Q2

REPORT INFORMATION
  Report Type: Spontaneous
  Country: US (occurrence: US)
  Receive Date: 20130206
  Receipt Date: 20130427
  Transmission Date: 20140414
  Serious: No
  Sender: FDA-Public Use
  Company Number: US-009507513-1302USA000110

PATIENT
  Age: 57 Year
  Sex: Male
  Weight: 99.77 kg

DRUGS (7)
  1. PEG-INTRON [Suspect]
     Indication: HEPATITIS C
     Dosage: 150 MICROGRAM/ 0.5 ML
     Route: 058
     Dates: start: 20121116, end: 20130213
  2. VICTRELIS [Suspect]
     Indication: HEPATITIS C
     Dosage: UNK
     Dates: start: 20121116, end: 20130213
  3. REBETOL [Suspect]
     Indication: HEPATITIS C
     Dosage: UNK
     Dates: start: 20121116, end: 20130213
  4. HUMIRA [Concomitant]
     Dosage: 40 MG/0.8
  5. IBUPROFEN [Concomitant]
  6. METHOCARBAMOL [Concomitant]
  7. OXYCODONE [Concomitant]

REACTIONS (12)
  - Dysgeusia [Recovering/Resolving]
  - Crying [Recovering/Resolving]
  - Weight decreased [Recovering/Resolving]
  - Diarrhoea [Recovering/Resolving]
  - Disturbance in attention [Recovering/Resolving]
  - Dizziness [Recovering/Resolving]
  - Dyspnoea [Recovering/Resolving]
  - Fatigue [Recovering/Resolving]
  - Irritability [Recovering/Resolving]
  - Asthenia [Unknown]
  - Stomatitis [Unknown]
  - Depression [Unknown]
